FAERS Safety Report 23635482 (Version 1)
Quarter: 2024Q1

REPORT INFORMATION
  Report Type: Spontaneous
  Country: FR (occurrence: FR)
  Receive Date: 20240315
  Receipt Date: 20240315
  Transmission Date: 20240410
  Serious: Yes (Other)
  Sender: FDA-Public Use
  Company Number: None

PATIENT
  Age: 72 Year
  Sex: Male

DRUGS (3)
  1. OXALIPLATIN [Suspect]
     Active Substance: OXALIPLATIN
     Indication: Colorectal cancer metastatic
     Dosage: OXALIPLATINE
     Route: 042
     Dates: start: 202306, end: 202307
  2. ONDANSETRON [Suspect]
     Active Substance: ONDANSETRON
     Indication: Colorectal cancer metastatic
     Route: 042
     Dates: start: 202307, end: 202307
  3. METHYLPREDNISOLONE [Suspect]
     Active Substance: METHYLPREDNISOLONE
     Indication: Colorectal cancer metastatic
     Route: 042
     Dates: start: 202307, end: 202307

REACTIONS (1)
  - Type I hypersensitivity [Recovered/Resolved]

NARRATIVE: CASE EVENT DATE: 20230701
